FAERS Safety Report 9460637 (Version 3)
Quarter: 2013Q4

REPORT INFORMATION
  Report Type: Report from Study
  Country: BR (occurrence: BR)
  Receive Date: 20130815
  Receipt Date: 20131023
  Transmission Date: 20140711
  Serious: Yes (Other)
  Sender: FDA-Public Use
  Company Number: PHHY2013BR088101

PATIENT
  Sex: Female
  Weight: 59 kg

DRUGS (4)
  1. ACLASTA [Suspect]
     Indication: OSTEOPOROSIS
     Dosage: 5 MG, UNK
     Route: 042
     Dates: start: 2010
  2. ACLASTA [Suspect]
     Dosage: 5 MG, UNK
     Route: 042
     Dates: start: 2012
  3. PARACETAMOL [Concomitant]
     Dosage: UNK UKN, UNK
     Dates: start: 2012
  4. ROSUVASTATINA//ROSUVASTATIN [Concomitant]
     Dosage: UNK UKN, UNK
     Dates: start: 2010

REACTIONS (4)
  - Arthropathy [Recovered/Resolved]
  - Chondropathy [Recovered/Resolved]
  - Abdominal pain [Recovered/Resolved]
  - Pain in extremity [Recovered/Resolved]
